FAERS Safety Report 21092021 (Version 2)
Quarter: 2022Q3

REPORT INFORMATION
  Report Type: Report from Study
  Country: CO (occurrence: CO)
  Receive Date: 20220718
  Receipt Date: 20220907
  Transmission Date: 20221027
  Serious: Yes (Other)
  Sender: FDA-Public Use
  Company Number: CO-UCBSA-2022038585

PATIENT
  Age: 61 Year
  Sex: Male

DRUGS (2)
  1. CERTOLIZUMAB PEGOL [Suspect]
     Active Substance: CERTOLIZUMAB PEGOL
     Indication: Rheumatoid arthritis
     Dosage: 400 MILLIGRAM, EV 4 WEEKS
     Route: 058
     Dates: start: 20200807, end: 20220407
  2. GATIDEX [GATIFLOXACIN] [Concomitant]
     Indication: Cataract

REACTIONS (4)
  - Cataract operation [Recovered/Resolved]
  - Cataract [Unknown]
  - Intraocular lens implant [Recovered/Resolved]
  - Cataract operation complication [Recovering/Resolving]

NARRATIVE: CASE EVENT DATE: 20220131
